FAERS Safety Report 11483316 (Version 1)
Quarter: 2015Q3

REPORT INFORMATION
  Report Type: Spontaneous
  Country: US (occurrence: US)
  Receive Date: 20150903
  Receipt Date: 20150903
  Transmission Date: 20151125
  Serious: No
  Sender: FDA-Public Use
  Company Number: US-ELI_LILLY_AND_COMPANY-US201206004189

PATIENT
  Age: 35 Year
  Sex: Female

DRUGS (1)
  1. CYMBALTA [Suspect]
     Active Substance: DULOXETINE HYDROCHLORIDE
     Indication: PANIC ATTACK
     Dosage: 30 MG, QD

REACTIONS (7)
  - Dysarthria [Not Recovered/Not Resolved]
  - Off label use [Unknown]
  - Memory impairment [Not Recovered/Not Resolved]
  - Hypotension [Not Recovered/Not Resolved]
  - Malaise [Not Recovered/Not Resolved]
  - Dysstasia [Not Recovered/Not Resolved]
  - Tremor [Not Recovered/Not Resolved]
